FAERS Safety Report 20704382 (Version 1)
Quarter: 2022Q2

REPORT INFORMATION
  Report Type: Spontaneous
  Country: US (occurrence: US)
  Receive Date: 20220413
  Receipt Date: 20220413
  Transmission Date: 20220721
  Serious: Yes (Other)
  Sender: FDA-Public Use
  Company Number: US-APOTEX-2022AP005922

PATIENT
  Age: 66 Year
  Sex: Male

DRUGS (2)
  1. ITRACONAZOLE [Suspect]
     Active Substance: ITRACONAZOLE
     Indication: Disseminated blastomycosis
     Dosage: 100 MILLIGRAM, QD
     Route: 065
  2. ITRACONAZOLE [Suspect]
     Active Substance: ITRACONAZOLE
     Dosage: 200 MILLIGRAM, QD
     Route: 065

REACTIONS (3)
  - Cardiac failure [Recovering/Resolving]
  - Dyspnoea [Recovered/Resolved]
  - Weight increased [Recovered/Resolved]
